FAERS Safety Report 10344875 (Version 1)
Quarter: 2014Q3

REPORT INFORMATION
  Report Type: Spontaneous
  Country: US (occurrence: US)
  Receive Date: 20140728
  Receipt Date: 20140728
  Transmission Date: 20150326
  Serious: No
  Sender: FDA-Public Use
  Company Number: US-PFIZER INC-2014207213

PATIENT
  Age: 55 Year
  Sex: Female
  Weight: 79.8 kg

DRUGS (5)
  1. LAMICTAL [Concomitant]
     Active Substance: LAMOTRIGINE
     Indication: AFFECTIVE DISORDER
     Dosage: 100 MG, UNK
  2. ZOLOFT [Concomitant]
     Active Substance: SERTRALINE HYDROCHLORIDE
     Indication: DEPRESSION
     Dosage: 100 MG, DAILY
  3. VISTARIL [Suspect]
     Active Substance: HYDROXYZINE PAMOATE
     Indication: SLEEP DISORDER
     Dosage: UNK, DAILY
     Dates: start: 2013, end: 201312
  4. TRAMADOL [Concomitant]
     Active Substance: TRAMADOL
     Indication: ARTHRALGIA
     Dosage: 50 MG, AS NEEDED
  5. MELOXICAM. [Concomitant]
     Active Substance: MELOXICAM
     Indication: OSTEOARTHRITIS
     Dosage: 15 MG, DAILY

REACTIONS (8)
  - Pain [Recovered/Resolved]
  - Urticaria [Recovered/Resolved]
  - Tooth loss [Unknown]
  - Nail disorder [Unknown]
  - Ear disorder [Unknown]
  - Alopecia [Unknown]
  - Mineral deficiency [Unknown]
  - Genital disorder female [Unknown]

NARRATIVE: CASE EVENT DATE: 2013
